FAERS Safety Report 14477397 (Version 1)
Quarter: 2018Q1

REPORT INFORMATION
  Report Type: Report from Study
  Country: US (occurrence: US)
  Receive Date: 20180201
  Receipt Date: 20180201
  Transmission Date: 20180509
  Serious: No
  Sender: FDA-Public Use
  Company Number: US-EXELIXIS-CABO-17010521

PATIENT
  Sex: Male

DRUGS (9)
  1. ATORVASTATIN [Concomitant]
     Active Substance: ATORVASTATIN
  2. FOLIC ACID. [Concomitant]
     Active Substance: FOLIC ACID
  3. VITAMIN D [Concomitant]
     Active Substance: CHOLECALCIFEROL
  4. MAG OXIDE [Concomitant]
     Active Substance: MAGNESIUM OXIDE
  5. MS CONTIN [Concomitant]
     Active Substance: MORPHINE SULFATE
  6. TESSALON [Concomitant]
     Active Substance: BENZONATATE
  7. CABOMETYX [Suspect]
     Active Substance: CABOZANTINIB S-MALATE
     Indication: LUNG NEOPLASM MALIGNANT
     Dosage: 60 MG, QD
     Route: 048
     Dates: start: 20170913, end: 201710
  8. JANUMET [Concomitant]
     Active Substance: METFORMIN HYDROCHLORIDE\SITAGLIPTIN PHOSPHATE
  9. ENALAPRIL [Concomitant]
     Active Substance: ENALAPRIL

REACTIONS (7)
  - Off label use [Unknown]
  - Haemorrhage [Unknown]
  - Myalgia [Unknown]
  - Stomatitis [Unknown]
  - Oesophageal pain [Unknown]
  - Tongue discomfort [Unknown]
  - Nausea [Unknown]
